FAERS Safety Report 7434069-7 (Version None)
Quarter: 2011Q2

REPORT INFORMATION
  Report Type: 
  Country: None (occurrence: None)
  Receive Date: 20110425
  Receipt Date: 20110419
  Transmission Date: 20111010
  Serious: Yes (Death, Life-Threatening)
  Sender: FDA-Public Use
  Company Number: JP-ASTELLAS-2011JP002183

PATIENT
  Sex: Female
  Weight: 50 kg

DRUGS (32)
  1. PROGRAF [Suspect]
     Dosage: UNK
     Route: 041
     Dates: start: 20110216, end: 20110217
  2. RAMELTEON [Concomitant]
     Indication: PROPHYLAXIS OF NAUSEA AND VOMITING
     Dosage: 0.3 MG, BID
     Route: 041
     Dates: start: 20110203, end: 20110207
  3. LASIX [Concomitant]
     Indication: OEDEMA
     Dosage: UNK
     Route: 041
     Dates: start: 20110209, end: 20110224
  4. INTRALIPID 10% [Concomitant]
     Dosage: 250 ML, UID/QD
     Route: 041
     Dates: start: 20110222, end: 20110222
  5. VENOGLOBULIN [Concomitant]
     Indication: PROPHYLAXIS AGAINST GRAFT VERSUS HOST DISEASE
     Dosage: 10 G, UID/QD
     Route: 041
     Dates: start: 20110208, end: 20110222
  6. NAMIMYCIN [Concomitant]
     Indication: BACTERIAL INFECTION
     Dosage: 100 MG, UID/QD
     Route: 041
     Dates: start: 20110220, end: 20110222
  7. TAKEPRON [Concomitant]
     Dosage: 30 MG, UID/QD
     Route: 041
     Dates: start: 20110217, end: 20110224
  8. PREDONINE [Concomitant]
     Indication: GRAFT VERSUS HOST DISEASE
     Dosage: 45 MG, UID/QD
     Route: 041
     Dates: start: 20110219, end: 20110224
  9. ALPROSTADIL [Concomitant]
     Indication: VENOOCCLUSIVE DISEASE
     Dosage: 500 UG, CONTINUOUS
     Route: 041
     Dates: start: 20110221, end: 20110224
  10. ALBUMIN (HUMAN) [Concomitant]
     Indication: OEDEMA
     Dosage: 50 ML, UID/QD
     Route: 041
     Dates: start: 20110218, end: 20110224
  11. METHOTREXATE [Concomitant]
     Indication: PROPHYLAXIS AGAINST GRAFT VERSUS HOST DISEASE
     Dosage: 20 MG, UID/QD
     Route: 042
     Dates: start: 20110209, end: 20110209
  12. METHOTREXATE [Concomitant]
     Dosage: 13 MG, UID/QD
     Route: 042
     Dates: start: 20110214, end: 20110214
  13. ZOVIRAX [Concomitant]
     Dosage: 1000 MG, UNKNOWN/D
     Route: 048
     Dates: start: 20110201, end: 20110219
  14. MAXIPIME [Concomitant]
     Indication: BACTERIAL INFECTION
     Dosage: 1 G, QID
     Route: 041
     Dates: start: 20110215, end: 20110219
  15. ATARAX [Concomitant]
     Indication: PREMEDICATION
     Dosage: 25 MG, UID/QD
     Route: 041
     Dates: start: 20110208, end: 20110208
  16. GASTER [Concomitant]
     Dosage: 40 MG, CONTINUOUS
     Route: 041
     Dates: start: 20110209, end: 20110217
  17. ACYCRIL [Concomitant]
     Dosage: 250 MG, BID
     Route: 041
     Dates: start: 20110220, end: 20110224
  18. MAGNESIUM SULFATE [Concomitant]
     Indication: HYPOMAGNESAEMIA
     Dosage: 1 MEQ, CONTINUOUS
     Route: 041
     Dates: start: 20110209, end: 20110213
  19. METHOTREXATE [Concomitant]
     Dosage: 13 MG, UID/QD
     Route: 042
     Dates: start: 20110211, end: 20110211
  20. NEUTROGIN [Concomitant]
     Dosage: 250 UG, CONTINUOUS
     Route: 041
     Dates: start: 20110209, end: 20110224
  21. PROGRAF [Suspect]
     Indication: PROPHYLAXIS AGAINST GRAFT VERSUS HOST DISEASE
     Dosage: 0.8 MG, CONTINUOUS
     Route: 041
     Dates: start: 20110207, end: 20110215
  22. FLUDARA [Concomitant]
     Indication: PREMEDICATION
     Dosage: 40 MG, UID/QD
     Route: 041
     Dates: start: 20110203, end: 20110207
  23. CIPROFLOXACIN HCL [Concomitant]
     Dosage: 200 MG, TID
     Route: 048
     Dates: start: 20110125, end: 20110219
  24. TAMIFLU [Concomitant]
     Indication: INFLUENZA
     Dosage: 75 MG, BID
     Route: 048
     Dates: start: 20110216, end: 20110221
  25. FLURBIPROFEN [Concomitant]
     Dosage: 50 MG, UNKNOWN/D
     Route: 041
     Dates: start: 20110212, end: 20110223
  26. ALKERAN [Concomitant]
     Indication: PREMEDICATION
     Dosage: 90 MG, UID/QD
     Route: 041
     Dates: start: 20110205, end: 20110206
  27. FENTANYL [Concomitant]
     Indication: PAIN
     Dosage: 0.2 MG, CONTINUOUS
     Route: 041
     Dates: start: 20110219, end: 20110224
  28. VFEND [Concomitant]
     Dosage: 100 MG, BID
     Route: 048
     Dates: start: 20110125, end: 20110219
  29. FUNGUARD [Concomitant]
     Dosage: 100 MG, UID/QD
     Route: 041
     Dates: start: 20110219, end: 20110224
  30. SAXIZON [Concomitant]
     Indication: PREMEDICATION
     Dosage: 300 MG, UID/QD
     Route: 041
     Dates: start: 20110208, end: 20110223
  31. RECOMODULIN [Concomitant]
     Indication: DISSEMINATED INTRAVASCULAR COAGULATION
     Dosage: 6400 IU, UID/QD
     Route: 041
     Dates: start: 20110222, end: 20110224
  32. SOLCOSERYL [Concomitant]
     Dosage: 4 ML, CONTINUOUS
     Route: 041
     Dates: start: 20110222, end: 20110224

REACTIONS (5)
  - RENAL FAILURE ACUTE [None]
  - STAPHYLOCOCCAL SEPSIS [None]
  - BACTERIAL INFECTION [None]
  - BACTERIAL SEPSIS [None]
  - INFLUENZA [None]
